FAERS Safety Report 9434990 (Version 1)
Quarter: 2013Q3

REPORT INFORMATION
  Report Type: Report from Study
  Country: FR (occurrence: FR)
  Receive Date: 20130801
  Receipt Date: 20130801
  Transmission Date: 20140515
  Serious: Yes (Hospitalization)
  Sender: FDA-Public Use
  Company Number: PHHO2013FR009937

PATIENT
  Age: 60 Year
  Sex: Male

DRUGS (1)
  1. AFINITOR [Suspect]
     Indication: METASTASES TO LIVER
     Dosage: 10 MG, QD
     Route: 048
     Dates: start: 20130627, end: 20130709

REACTIONS (1)
  - Hepatic necrosis [Not Recovered/Not Resolved]
